FAERS Safety Report 9919636 (Version 2)
Quarter: 2014Q1

REPORT INFORMATION
  Report Type: Report from Study
  Country: TR (occurrence: TR)
  Receive Date: 20140224
  Receipt Date: 20140224
  Transmission Date: 20141002
  Serious: Yes (Hospitalization, Other)
  Sender: FDA-Public Use
  Company Number: TR-INCYTE CORPORATION-2014IN000104

PATIENT
  Age: 55 Year
  Sex: Female
  Weight: 79 kg

DRUGS (5)
  1. INC424 [Suspect]
     Indication: MYELOFIBROSIS
     Dosage: 20 MG, BID
     Route: 048
     Dates: start: 20130731, end: 20131108
  2. INC424 [Suspect]
     Dosage: 20 MG, BID, 2X4 TABLETS
     Route: 065
     Dates: start: 20130820, end: 20131001
  3. INC424 [Suspect]
     Dosage: UNK UNK, UNK
     Route: 065
     Dates: end: 201401
  4. LIPANTHYL [Concomitant]
     Dosage: 267 MG, UNK
  5. METFORMINE [Concomitant]
     Dosage: 500 MG, UNK

REACTIONS (5)
  - Nephrolithiasis [Not Recovered/Not Resolved]
  - Flank pain [Not Recovered/Not Resolved]
  - Urinary tract infection [Recovered/Resolved]
  - Diarrhoea [Not Recovered/Not Resolved]
  - Computerised tomogram abdomen abnormal [Not Recovered/Not Resolved]
